FAERS Safety Report 10765882 (Version 1)
Quarter: 2015Q1

REPORT INFORMATION
  Report Type: Spontaneous
  Country: US (occurrence: None)
  Receive Date: 20150204
  Receipt Date: 20150204
  Transmission Date: 20150721
  Serious: Yes (Hospitalization)
  Sender: FDA-Public Use
  Company Number: None

PATIENT
  Age: 85 Year
  Sex: Male
  Weight: 64.7 kg

DRUGS (7)
  1. VITAMIN B6 [Concomitant]
     Active Substance: PYRIDOXINE HYDROCHLORIDE
  2. AVODART [Concomitant]
     Active Substance: DUTASTERIDE
  3. SMOG ENEMA (NACL, MGSO4, MINERAL OIL, GLYCERIN) [Suspect]
     Active Substance: GLYCERIN\MAGNESIUM SULFATE\MINERAL OIL\SODIUM CHLORIDE
     Indication: CONSTIPATION
     Dosage: 1 ENEMA ONCE RECTALLY
     Route: 054
  4. VITAMIN B12 [Concomitant]
     Active Substance: CYANOCOBALAMIN
  5. CASODEX [Concomitant]
     Active Substance: BICALUTAMIDE
  6. MOM [Suspect]
     Active Substance: MAGNESIUM HYDROXIDE
     Indication: CONSTIPATION
     Dosage: 1/2 BOTTLE DATES OF USE : RECENT
     Route: 048
  7. CA CARB VIT D [Concomitant]

REACTIONS (2)
  - Hypermagnesaemia [None]
  - Abdominal pain [None]

NARRATIVE: CASE EVENT DATE: 20141111
